FAERS Safety Report 20472752 (Version 2)
Quarter: 2022Q2

REPORT INFORMATION
  Report Type: Report from Study
  Country: CA (occurrence: CA)
  Receive Date: 20220215
  Receipt Date: 20220526
  Transmission Date: 20220720
  Serious: Yes (Hospitalization)
  Sender: FDA-Public Use
  Company Number: CA-JNJFOC-20220225802

PATIENT
  Age: 44 Year
  Sex: Female

DRUGS (1)
  1. REMICADE [Suspect]
     Active Substance: INFLIXIMAB
     Indication: Crohn^s disease
     Route: 042
     Dates: start: 20140331

REACTIONS (3)
  - Uterine cancer [Recovering/Resolving]
  - Metastases to lymph nodes [Recovering/Resolving]
  - Gastrointestinal obstruction [Not Recovered/Not Resolved]

NARRATIVE: CASE EVENT DATE: 20211201
